FAERS Safety Report 8030067-3 (Version None)
Quarter: 2012Q1

REPORT INFORMATION
  Report Type: 
  Country: None (occurrence: None)
  Receive Date: 20120106
  Receipt Date: 20120106
  Transmission Date: 20120608
  Serious: Yes (Hospitalization)
  Sender: FDA-Public Use
  Company Number: None

PATIENT
  Sex: Female
  Weight: 61.7 kg

DRUGS (2)
  1. RITUXAN [Suspect]
     Indication: CHRONIC LYMPHOCYTIC LEUKAEMIA
     Dosage: 375 MG/M2 DAY 1 IV
     Route: 042
  2. BENDAMUSTINE [Suspect]
     Indication: CHRONIC LYMPHOCYTIC LEUKAEMIA
     Dosage: 90 MG/M2 DAY 1 AND 2 IV
     Route: 042
     Dates: start: 20111006, end: 20111207

REACTIONS (3)
  - CHEST DISCOMFORT [None]
  - HAEMOGLOBIN DECREASED [None]
  - DYSPNOEA [None]
